FAERS Safety Report 25128081 (Version 1)
Quarter: 2025Q1

REPORT INFORMATION
  Report Type: Report from Study
  Country: US (occurrence: US)
  Receive Date: 20250327
  Receipt Date: 20250327
  Transmission Date: 20250409
  Serious: Yes (Hospitalization)
  Sender: ALEXION PHARMACEUTICALS
  Company Number: US-AstraZeneca-CH-00833008A

PATIENT
  Age: 70 Year

DRUGS (1)
  1. CAPIVASERTIB [Suspect]
     Active Substance: CAPIVASERTIB
     Indication: Bone neoplasm
     Dosage: 200 MILLIGRAM, BID, DISCOMFORT

REACTIONS (1)
  - Abdominal discomfort [Unknown]
